FAERS Safety Report 9091990 (Version 1)
Quarter: 2013Q1

REPORT INFORMATION
  Report Type: Spontaneous
  Country: US (occurrence: US)
  Receive Date: 20130131
  Receipt Date: 20130131
  Transmission Date: 20140127
  Serious: Yes (Other)
  Sender: FDA-Public Use
  Company Number: US-PFIZER INC-2013039655

PATIENT
  Age: 52 Year
  Sex: Female
  Weight: 58.96 kg

DRUGS (5)
  1. PROCARDIA XL [Suspect]
     Indication: HYPERTENSION
     Dosage: 90 MG, DAILY
  2. PROCARDIA XL [Suspect]
     Dosage: 60 MG, DAILY
  3. XANAX [Concomitant]
     Indication: ANXIETY
     Dosage: 0.5 MG, 3X/DAY
  4. CELEXA [Concomitant]
     Indication: DEPRESSION
     Dosage: 20 MG, DAILY
  5. ACETYLSALICYLIC ACID [Concomitant]
     Dosage: 325 MG, DAILY

REACTIONS (1)
  - Transient ischaemic attack [Unknown]
